FAERS Safety Report 5772113-3 (Version None)
Quarter: 2008Q2

REPORT INFORMATION
  Report Type: 
  Country: None (occurrence: None)
  Receive Date: 20080611
  Receipt Date: 20080527
  Transmission Date: 20081010
  Serious: Yes (Other)
  Sender: FDA-Public Use
  Company Number: GB-1166200

PATIENT
  Age: 39 Year
  Sex: Female

DRUGS (3)
  1. AZOPT [Suspect]
     Indication: OCULAR HYPERTENSION
     Dosage: OPHTHALMIC
     Route: 047
     Dates: start: 20080206, end: 20080216
  2. INSULIN [Concomitant]
  3. LATANOPROST [Concomitant]

REACTIONS (2)
  - ABDOMINAL PAIN [None]
  - HAEMATEMESIS [None]
